FAERS Safety Report 19475987 (Version 1)
Quarter: 2021Q2

REPORT INFORMATION
  Report Type: Spontaneous
  Country: IR (occurrence: IR)
  Receive Date: 20210630
  Receipt Date: 20210630
  Transmission Date: 20210717
  Serious: Yes (Death)
  Sender: FDA-Public Use
  Company Number: IR-PFIZER INC-2021487871

PATIENT
  Age: 22 Month
  Sex: Female
  Weight: 8.5 kg

DRUGS (6)
  1. ITRACONAZOLE. [Concomitant]
     Active Substance: ITRACONAZOLE
     Indication: FUNGAL INFECTION
     Dosage: 100 MG, DAILY
     Route: 048
  2. VORICONAZOLE. [Suspect]
     Active Substance: VORICONAZOLE
     Indication: PNEUMONIA NECROTISING
     Dosage: 6 MG/KG Q12HR
  3. LIPOSOMAL AMPHOTERICIN B [Suspect]
     Active Substance: AMPHOTERICIN B
     Indication: FUNGAL INFECTION
     Dosage: 3 MG/KG, DAILY
  4. CASPOFUNGIN [Concomitant]
     Active Substance: CASPOFUNGIN
     Indication: FUNGAL INFECTION
     Dosage: 50 MG/M2, DAILY
     Route: 042
  5. INTERFERON [Concomitant]
     Active Substance: INTERFERON
     Indication: FUNGAL INFECTION
     Dosage: 100 MG/M2 EVERY OTHER DAY
  6. TRIMETHOPRIM SULFAMETHOXAZOLE [Concomitant]
     Active Substance: SULFAMETHOXAZOLE\TRIMETHOPRIM
     Indication: CHRONIC GRANULOMATOUS DISEASE
     Dosage: UNK

REACTIONS (3)
  - Drug resistance [Fatal]
  - Drug ineffective [Fatal]
  - Coma [Fatal]
